FAERS Safety Report 6943330-1 (Version None)
Quarter: 2010Q3

REPORT INFORMATION
  Report Type: 
  Country: None (occurrence: None)
  Receive Date: 20100826
  Receipt Date: 20100817
  Transmission Date: 20110219
  Serious: Yes (Death, Hospitalization, Other)
  Sender: FDA-Public Use
  Company Number: US-AMGEN-US357690

PATIENT
  Sex: Female
  Weight: 80.4 kg

DRUGS (10)
  1. NPLATE [Suspect]
     Indication: IDIOPATHIC THROMBOCYTOPENIC PURPURA
     Route: 058
     Dates: start: 20090122, end: 20090623
  2. RITUXIMAB [Concomitant]
  3. ASACOL [Concomitant]
     Dates: start: 20020212
  4. NORVASC [Concomitant]
  5. INSULIN [Concomitant]
     Dates: start: 20020201
  6. ATENOLOL [Concomitant]
     Dates: start: 20020201
  7. PROTONIX [Concomitant]
  8. MOMETASONE FUROATE [Concomitant]
     Route: 055
  9. ARANESP [Concomitant]
  10. RED BLOOD CELLS [Concomitant]
     Dates: start: 20090616

REACTIONS (3)
  - DEATH [None]
  - THERAPEUTIC RESPONSE DECREASED [None]
  - THROMBOCYTOPENIA [None]
